FAERS Safety Report 6977433 (Version 9)
Quarter: 2016Q2

REPORT INFORMATION
  Report Type: Spontaneous
  Country: CY (occurrence: CY)
  Receive Date: 20090424
  Receipt Date: 20160421
  Transmission Date: 20160815
  Serious: Yes (Life-Threatening, Hospitalization, Disabling, Other)
  Sender: FDA-Public Use
  Company Number: CY-PFIZER INC-2009198817

PATIENT
  Age: 16 Year
  Sex: Male

DRUGS (2)
  1. ZITHROMAX [Suspect]
     Active Substance: AZITHROMYCIN DIHYDRATE
     Indication: VIRAL INFECTION
     Dosage: 500 MG, 1X/DAY
     Route: 048
     Dates: start: 20090329, end: 20090401
  2. FORMOTEROL [Concomitant]
     Active Substance: FORMOTEROL
     Dosage: UNK
     Route: 055
     Dates: start: 20090329

REACTIONS (9)
  - Bone marrow disorder [Not Recovered/Not Resolved]
  - Lymphoid tissue hyperplasia [Unknown]
  - Drug ineffective [Unknown]
  - Acute hepatic failure [Recovered/Resolved]
  - Renal failure [Recovering/Resolving]
  - Intracranial pressure increased [Recovered/Resolved]
  - Hepatic necrosis [Recovered/Resolved]
  - Hepatic encephalopathy [Unknown]
  - Neurological symptom [Recovered/Resolved]

NARRATIVE: CASE EVENT DATE: 2009
